FAERS Safety Report 5579016-8 (Version None)
Quarter: 2007Q4

REPORT INFORMATION
  Report Type: 
  Country: None (occurrence: None)
  Receive Date: 20071228
  Receipt Date: 20071219
  Transmission Date: 20080405
  Serious: Yes (Hospitalization)
  Sender: FDA-Public Use
  Company Number: 2006US000007

PATIENT
  Age: 6 Year
  Sex: Male
  Weight: 23.3 kg

DRUGS (21)
  1. PROGRAF [Suspect]
     Indication: PROPHYLAXIS AGAINST TRANSPLANT REJECTION
     Dosage: 2 MG, BID, ORAL
     Route: 048
     Dates: start: 20051218
  2. ZENAPAX [Suspect]
     Indication: PROPHYLAXIS AGAINST TRANSPLANT REJECTION
     Dosage: SEE IMAGE
     Route: 042
     Dates: start: 20050606, end: 20050606
  3. ZENAPAX [Suspect]
     Indication: PROPHYLAXIS AGAINST TRANSPLANT REJECTION
     Dosage: SEE IMAGE
     Route: 042
     Dates: start: 20050621, end: 20050621
  4. ZENAPAX [Suspect]
     Indication: PROPHYLAXIS AGAINST TRANSPLANT REJECTION
     Dosage: SEE IMAGE
     Route: 042
     Dates: start: 20050705, end: 20050705
  5. ZENAPAX [Suspect]
     Indication: PROPHYLAXIS AGAINST TRANSPLANT REJECTION
     Dosage: SEE IMAGE
     Route: 042
     Dates: start: 20050719, end: 20050719
  6. ZENAPAX [Suspect]
     Indication: PROPHYLAXIS AGAINST TRANSPLANT REJECTION
     Dosage: SEE IMAGE
     Route: 042
     Dates: start: 20050802, end: 20050802
  7. ZENAPAX [Suspect]
     Indication: PROPHYLAXIS AGAINST TRANSPLANT REJECTION
     Dosage: SEE IMAGE
     Route: 042
     Dates: start: 20050823, end: 20050823
  8. ZENAPAX [Suspect]
     Indication: PROPHYLAXIS AGAINST TRANSPLANT REJECTION
     Dosage: SEE IMAGE
     Route: 042
     Dates: start: 20051004, end: 20051004
  9. ZENAPAX [Suspect]
     Indication: PROPHYLAXIS AGAINST TRANSPLANT REJECTION
     Dosage: SEE IMAGE
     Route: 042
     Dates: start: 20051108, end: 20051108
  10. ZENAPAX [Suspect]
     Indication: PROPHYLAXIS AGAINST TRANSPLANT REJECTION
     Dosage: SEE IMAGE
     Route: 042
     Dates: start: 20051206, end: 20051206
  11. CIPROFLOXACIN [Concomitant]
  12. G-CSF (GRANULOCYTE COLONY STIMULATING FACTOR) [Concomitant]
  13. BACTRIM [Concomitant]
  14. VALGANCICLOVIR HCL [Concomitant]
  15. LACTOBACILLUS ACIDOPHILUS (LACTOBACILLUS ACIDOPHILUS) [Concomitant]
  16. SULFAMETHOXAZOLE AND TRIMETHOPRIM [Concomitant]
  17. ACETAMINOPHEN [Concomitant]
  18. CEFTRIAXONE [Concomitant]
  19. NEUPOGEN [Concomitant]
  20. HEPARIN [Concomitant]
  21. SODIUM CHLORIDE [Concomitant]

REACTIONS (4)
  - BACTERIAL PYELONEPHRITIS [None]
  - DIARRHOEA [None]
  - ESCHERICHIA URINARY TRACT INFECTION [None]
  - WHITE BLOOD CELL COUNT DECREASED [None]
